FAERS Safety Report 12600000 (Version 1)
Quarter: 2016Q3

REPORT INFORMATION
  Report Type: Spontaneous
  Country: GB (occurrence: GB)
  Receive Date: 20160727
  Receipt Date: 20160727
  Transmission Date: 20161109
  Serious: Yes (Hospitalization, Other)
  Sender: FDA-Public Use
  Company Number: GB-PFIZER INC-2016349264

PATIENT
  Age: 51 Year
  Sex: Female

DRUGS (7)
  1. METFORMIN [Concomitant]
     Active Substance: METFORMIN HYDROCHLORIDE
     Dosage: UNK
  2. MIGRALEVE PINK [Concomitant]
  3. QUININE [Concomitant]
     Active Substance: QUININE
  4. SULFASALAZINE. [Suspect]
     Active Substance: SULFASALAZINE
     Dosage: 500 MG, UNK
     Route: 048
     Dates: start: 201606
  5. GLICLAZIDE [Concomitant]
     Active Substance: GLICLAZIDE
  6. SIMVASTATIN. [Concomitant]
     Active Substance: SIMVASTATIN
  7. SULFASALAZINE. [Suspect]
     Active Substance: SULFASALAZINE
     Indication: ARTHRITIS
     Dosage: 1 G, 2X/DAY
     Route: 048
     Dates: end: 20160707

REACTIONS (6)
  - Tonsillitis [Unknown]
  - Dyspnoea [Unknown]
  - Agranulocytosis [Not Recovered/Not Resolved]
  - Oropharyngeal pain [Unknown]
  - Dysphagia [Unknown]
  - Acidosis [Unknown]

NARRATIVE: CASE EVENT DATE: 20160704
